FAERS Safety Report 7959001-9 (Version None)
Quarter: 2011Q4

REPORT INFORMATION
  Report Type: 
  Country: None (occurrence: None)
  Receive Date: 20111130
  Receipt Date: 20111122
  Transmission Date: 20120403
  Serious: Yes (Death)
  Sender: FDA-Public Use
  Company Number: DKLU1073786

PATIENT
  Age: 2 Year
  Sex: Male
  Weight: 13.38 kg

DRUGS (6)
  1. SABRIL [Suspect]
     Indication: EPILEPSY
     Dosage: 750 MG MILLIGRAM(S),1 IN 1 D, ORAL ; 250 MG MILLIGRAM(S), 2 IN 1 D), ORAL
     Route: 048
     Dates: start: 20110301
  2. SABRIL [Suspect]
     Indication: TUBEROUS SCLEROSIS
     Dosage: 750 MG MILLIGRAM(S),1 IN 1 D, ORAL ; 250 MG MILLIGRAM(S), 2 IN 1 D), ORAL
     Route: 048
     Dates: start: 20110301
  3. SABRIL [Suspect]
     Indication: EPILEPSY
     Dosage: 750 MG MILLIGRAM(S),1 IN 1 D, ORAL ; 250 MG MILLIGRAM(S), 2 IN 1 D), ORAL
     Route: 048
     Dates: start: 20110506, end: 20110908
  4. SABRIL [Suspect]
     Indication: TUBEROUS SCLEROSIS
     Dosage: 750 MG MILLIGRAM(S),1 IN 1 D, ORAL ; 250 MG MILLIGRAM(S), 2 IN 1 D), ORAL
     Route: 048
     Dates: start: 20110506, end: 20110908
  5. SABRIL [Suspect]
     Indication: EPILEPSY
     Dosage: 750 MG MILLIGRAM(S),1 IN 1 D, ORAL ; 250 MG MILLIGRAM(S), 2 IN 1 D), ORAL
     Route: 048
     Dates: start: 20090601, end: 20100501
  6. SABRIL [Suspect]
     Indication: TUBEROUS SCLEROSIS
     Dosage: 750 MG MILLIGRAM(S),1 IN 1 D, ORAL ; 250 MG MILLIGRAM(S), 2 IN 1 D), ORAL
     Route: 048
     Dates: start: 20090601, end: 20100501

REACTIONS (1)
  - CARDIAC FAILURE [None]
